FAERS Safety Report 4286194-X (Version None)
Quarter: 2004Q1

REPORT INFORMATION
  Report Type: 
  Country: None (occurrence: None)
  Receive Date: 20040115
  Receipt Date: 20030826
  Transmission Date: 20041129
  Serious: Yes (Other)
  Sender: FDA-Public Use
  Company Number: 2003157294PR

PATIENT
  Age: 55 Year
  Sex: Male
  Weight: 74.8 kg

DRUGS (7)
  1. ROGAINE [Suspect]
     Indication: ALOPECIA
     Dosage: 1 ML, BID, TOPICAL
     Route: 061
     Dates: start: 20030401, end: 20030419
  2. MONOPRIL [Concomitant]
  3. TIAZAC [Concomitant]
  4. CATAPRES [Concomitant]
  5. MIACALCIN [Concomitant]
  6. REMEGEL (ALUMINIUM HYDROXIDE-MAGNESIUM CARBONATE GEL) [Concomitant]
  7. IRON [Concomitant]

REACTIONS (1)
  - FLUID RETENTION [None]
